FAERS Safety Report 8888345 (Version 2)
Quarter: 2012Q4

REPORT INFORMATION
  Report Type: 
  Country: JP (occurrence: JP)
  Receive Date: 20121106
  Receipt Date: 20121227
  Transmission Date: 20130627
  Serious: Yes (Hospitalization, Other)
  Sender: FDA-Public Use
  Company Number: JP-PFIZER INC-2012239631

PATIENT
  Age: 46 Year
  Sex: Female
  Weight: 41 kg

DRUGS (4)
  1. REVATIO [Suspect]
     Indication: PULMONARY HYPERTENSION
     Dosage: 20 mg, 3x/day
     Route: 048
     Dates: start: 2008
  2. LUNABELL [Concomitant]
     Indication: DYSMENORRHOEA
     Dosage: UNK
     Route: 048
  3. DIGOXIN [Concomitant]
     Indication: COR PULMONALE
     Dosage: 0.375 mg, 1x/day
     Route: 048
  4. HALCION [Concomitant]
     Indication: INSOMNIA
     Dosage: 0.25 mg, 1x/day
     Route: 048

REACTIONS (2)
  - Ileus [Recovering/Resolving]
  - Dysmenorrhoea [Recovering/Resolving]
